FAERS Safety Report 16688852 (Version 1)
Quarter: 2019Q3

REPORT INFORMATION
  Report Type: Spontaneous
  Country: CA (occurrence: CA)
  Receive Date: 20190809
  Receipt Date: 20190809
  Transmission Date: 20191004
  Serious: Yes (Hospitalization, Other)
  Sender: FDA-Public Use
  Company Number: CA-SAMSUNG BIOEPIS-SB-2019-21329

PATIENT
  Age: 54 Year
  Sex: Female
  Weight: 110 kg

DRUGS (2)
  1. INFLIXIMAB [Suspect]
     Active Substance: INFLIXIMAB
     Indication: RHEUMATOID ARTHRITIS
     Route: 042
  2. LEFLUNOMIDE. [Concomitant]
     Active Substance: LEFLUNOMIDE
     Indication: PRODUCT USED FOR UNKNOWN INDICATION
     Route: 065

REACTIONS (9)
  - Ear infection [Recovered/Resolved]
  - Gastric infection [Recovered/Resolved]
  - Malaise [Recovered/Resolved]
  - Blood pressure fluctuation [Recovered/Resolved]
  - Product use issue [Recovered/Resolved]
  - Therapeutic product effect incomplete [Recovered/Resolved]
  - Toothache [Recovered/Resolved]
  - Blood pressure increased [Recovered/Resolved]
  - Infection [Recovered/Resolved]
